FAERS Safety Report 4931950-5 (Version None)
Quarter: 2006Q1

REPORT INFORMATION
  Report Type: 
  Country: None (occurrence: None)
  Receive Date: 20060303
  Receipt Date: 20060210
  Transmission Date: 20060701
  Serious: Yes (Death, Hospitalization)
  Sender: FDA-Public Use
  Company Number: IT-MERCK-0602ITA00008

PATIENT
  Age: 63 Year
  Sex: Female

DRUGS (10)
  1. ZOCOR [Suspect]
     Indication: HYPERCHOLESTEROLAEMIA
     Route: 048
     Dates: start: 20050101, end: 20060206
  2. RAMIPRIL [Concomitant]
     Route: 065
  3. FUROSEMIDE SODIUM [Concomitant]
     Route: 065
  4. HYDROCHLOROTHIAZIDE AND IRBESARTAN [Concomitant]
     Route: 065
  5. ESCITALOPRAM OXALATE [Concomitant]
     Route: 065
  6. ASPIRIN [Concomitant]
     Route: 065
  7. TRAZODONE HYDROCHLORIDE [Concomitant]
     Route: 065
  8. GLIMEPIRIDE [Concomitant]
     Route: 065
  9. METFORMIN HYDROCHLORIDE [Concomitant]
     Route: 065
  10. LERCANIDIPINE [Concomitant]
     Route: 065

REACTIONS (1)
  - CARDIOMYOPATHY ACUTE [None]
